FAERS Safety Report 18430129 (Version 2)
Quarter: 2020Q4

REPORT INFORMATION
  Report Type: Report from Study
  Country: None (occurrence: US)
  Receive Date: 20201026
  Receipt Date: 20201120
  Transmission Date: 20210114
  Serious: Yes (Hospitalization, Other)
  Sender: FDA-Public Use
  Company Number: US-ABBVIE-20K-163-3512370-00

PATIENT
  Age: 54 Year
  Sex: Female
  Weight: 92.16 kg

DRUGS (2)
  1. RINVOQ [Suspect]
     Active Substance: UPADACITINIB
     Indication: RHEUMATOID ARTHRITIS
     Route: 048
     Dates: start: 202004, end: 202008
  2. RINVOQ [Suspect]
     Active Substance: UPADACITINIB
     Route: 048
     Dates: start: 202008

REACTIONS (8)
  - Pain [Recovered/Resolved]
  - Decreased appetite [Recovered/Resolved]
  - Nasopharyngitis [Recovered/Resolved]
  - COVID-19 [Recovered/Resolved]
  - Dizziness [Recovered/Resolved]
  - Abdominal neoplasm [Not Recovered/Not Resolved]
  - Pneumonia [Recovered/Resolved]
  - Alopecia [Not Recovered/Not Resolved]

NARRATIVE: CASE EVENT DATE: 202008
